FAERS Safety Report 23348979 (Version 1)
Quarter: 2023Q4

REPORT INFORMATION
  Report Type: Other
  Country: US (occurrence: None)
  Receive Date: 20231229
  Receipt Date: 20231229
  Transmission Date: 20240109
  Serious: Yes (Other)
  Sender: FDA-Public Use
  Company Number: US-ROCHE-3473108

PATIENT
  Age: 62 Year
  Sex: Female
  Weight: 62.652 kg

DRUGS (3)
  1. OCREVUS [Suspect]
     Active Substance: OCRELIZUMAB
     Indication: Relapsing multiple sclerosis
     Dosage: SUBSEQUENT DOSE ON 30/NOV/2022, 31/MAY/2023
     Route: 042
     Dates: start: 20180816
  2. TYLENOL [Concomitant]
     Active Substance: ACETAMINOPHEN
  3. DALFAMPRIDINE [Concomitant]
     Active Substance: DALFAMPRIDINE

REACTIONS (2)
  - Arthropod bite [Unknown]
  - Babesiosis [Unknown]

NARRATIVE: CASE EVENT DATE: 20231001
